FAERS Safety Report 5428381-0 (Version None)
Quarter: 2007Q3

REPORT INFORMATION
  Report Type: 
  Country: None (occurrence: None)
  Receive Date: 20070731
  Receipt Date: 20070418
  Transmission Date: 20080115
  Serious: No
  Sender: FDA-Public Use
  Company Number: US200704004196

PATIENT
  Age: 72 Year
  Sex: Male
  Weight: 134.7 kg

DRUGS (4)
  1. BYETTA [Suspect]
     Indication: TYPE 2 DIABETES MELLITUS
     Dosage: 5 UG, 2/D, SUBCUTANEOUS; 10 UG, 2/D, SUBCUTANEOUS
     Route: 058
     Dates: start: 20060901, end: 20061001
  2. BYETTA [Suspect]
     Indication: TYPE 2 DIABETES MELLITUS
     Dosage: 5 UG, 2/D, SUBCUTANEOUS; 10 UG, 2/D, SUBCUTANEOUS
     Route: 058
     Dates: start: 20061001
  3. EXENATIDE PEN, DISPOSABLE DEVICE (EXENATIDE PEN) [Concomitant]
  4. PRANDIN (DEFLAZACORT) [Concomitant]

REACTIONS (7)
  - ANOREXIA [None]
  - BLOOD GLUCOSE INCREASED [None]
  - DRUG EFFECT DECREASED [None]
  - GLYCOSYLATED HAEMOGLOBIN INCREASED [None]
  - HEADACHE [None]
  - NAUSEA [None]
  - WEIGHT INCREASED [None]
